FAERS Safety Report 19510416 (Version 2)
Quarter: 2022Q2

REPORT INFORMATION
  Report Type: Other
  Country: CA (occurrence: CA)
  Receive Date: 20210709
  Receipt Date: 20220617
  Transmission Date: 20220721
  Serious: Yes (Other)
  Sender: FDA-Public Use
  Company Number: CA-APOTEX-2021AP015253

PATIENT
  Age: 68 Year
  Sex: Male
  Weight: 70 kg

DRUGS (9)
  1. AMLODIPINE [Suspect]
     Active Substance: AMLODIPINE BESYLATE
     Indication: Product used for unknown indication
     Dosage: UNK
     Route: 048
  2. DEFERASIROX [Suspect]
     Active Substance: DEFERASIROX
     Indication: Iron overload
     Dosage: 1080 MILLIGRAM, QD
     Route: 048
  3. DEFERASIROX [Suspect]
     Active Substance: DEFERASIROX
     Indication: Anaemia
     Dosage: 900 MILLIGRAM, QD
     Route: 048
  4. DEFERASIROX [Suspect]
     Active Substance: DEFERASIROX
     Dosage: 1260 MILLIGRAM, QD
     Route: 048
  5. DEFERASIROX [Suspect]
     Active Substance: DEFERASIROX
     Dosage: 720 MILLIGRAM, QD
     Route: 048
  6. DEFERASIROX [Suspect]
     Active Substance: DEFERASIROX
     Dosage: 360 MILLIGRAM, QD
     Route: 048
  7. RIBOFLAVIN 5^-PHOSPHATE [Concomitant]
     Active Substance: RIBOFLAVIN 5^-PHOSPHATE
     Indication: Product used for unknown indication
     Dosage: UNK, QD
     Route: 065
  8. TYLENOL [Concomitant]
     Active Substance: ACETAMINOPHEN
     Indication: Product used for unknown indication
     Dosage: UNK
     Route: 065
  9. VITAMIN B2 [Concomitant]
     Active Substance: RIBOFLAVIN
     Indication: Product used for unknown indication
     Dosage: UNK UNK, QD
     Route: 065

REACTIONS (11)
  - Red blood cell count decreased [Not Recovered/Not Resolved]
  - Vomiting [Not Recovered/Not Resolved]
  - Hypersensitivity [Not Recovered/Not Resolved]
  - Haemoglobin decreased [Not Recovered/Not Resolved]
  - Drug hypersensitivity [Not Recovered/Not Resolved]
  - Paraesthesia [Not Recovered/Not Resolved]
  - Hypoaesthesia [Not Recovered/Not Resolved]
  - Diarrhoea [Not Recovered/Not Resolved]
  - Dyspepsia [Not Recovered/Not Resolved]
  - Abdominal pain upper [Not Recovered/Not Resolved]
  - Therapeutic product effect incomplete [Not Recovered/Not Resolved]
